FAERS Safety Report 8444520-1 (Version None)
Quarter: 2012Q2

REPORT INFORMATION
  Report Type: 
  Country: None (occurrence: None)
  Receive Date: 20120618
  Receipt Date: 20120614
  Transmission Date: 20120825
  Serious: No
  Sender: FDA-Public Use
  Company Number: US-PFIZER INC-2012145112

PATIENT
  Sex: Female
  Weight: 73.9 kg

DRUGS (3)
  1. LYRICA [Suspect]
     Indication: NERVE INJURY
     Dosage: 100 MG, 2X/DAY
     Route: 048
     Dates: start: 20110101
  2. ENALAPRIL [Concomitant]
     Indication: HYPERTENSION
     Dosage: 5 MG, 1X/DAY
  3. OXYCODONE [Concomitant]
     Indication: PAIN
     Dosage: ^5/325MG^ ONCE A WEEK

REACTIONS (1)
  - DRY MOUTH [None]
